FAERS Safety Report 25806674 (Version 1)
Quarter: 2025Q3

REPORT INFORMATION
  Report Type: Report from Study
  Country: GB (occurrence: GB)
  Receive Date: 20250916
  Receipt Date: 20250916
  Transmission Date: 20251020
  Serious: Yes (Other)
  Sender: MYLAN
  Company Number: GB-MYLANLABS-2025M1078552

PATIENT
  Sex: Female

DRUGS (9)
  1. TRAMADOL [Suspect]
     Active Substance: TRAMADOL
     Indication: Fibromyalgia
  2. TRAMADOL [Suspect]
     Active Substance: TRAMADOL
     Indication: Sickle cell anaemia
  3. TRAMADOL [Suspect]
     Active Substance: TRAMADOL
     Indication: Pain
  4. CODEINE [Suspect]
     Active Substance: CODEINE
     Indication: Fibromyalgia
  5. CODEINE [Suspect]
     Active Substance: CODEINE
     Indication: Sickle cell anaemia
  6. CODEINE [Suspect]
     Active Substance: CODEINE
     Indication: Pain
  7. MOVICOL [Suspect]
     Active Substance: POLYETHYLENE GLYCOL 3350\POTASSIUM CHLORIDE\SODIUM BICARBONATE\SODIUM CHLORIDE
     Indication: Fibromyalgia
  8. MOVICOL [Suspect]
     Active Substance: POLYETHYLENE GLYCOL 3350\POTASSIUM CHLORIDE\SODIUM BICARBONATE\SODIUM CHLORIDE
     Indication: Sickle cell anaemia
  9. MOVICOL [Suspect]
     Active Substance: POLYETHYLENE GLYCOL 3350\POTASSIUM CHLORIDE\SODIUM BICARBONATE\SODIUM CHLORIDE
     Indication: Pain

REACTIONS (8)
  - Sepsis [Unknown]
  - Speech disorder [Unknown]
  - Disorientation [Unknown]
  - Abdominal pain upper [Unknown]
  - Abdominal pain [Unknown]
  - Constipation [Unknown]
  - Vision blurred [Unknown]
  - Bone pain [Unknown]
